FAERS Safety Report 25589652 (Version 2)
Quarter: 2025Q3

REPORT INFORMATION
  Report Type: Spontaneous
  Country: JP (occurrence: JP)
  Receive Date: 20250722
  Receipt Date: 20250903
  Transmission Date: 20251020
  Serious: Yes (Hospitalization, Other)
  Sender: GILEAD
  Company Number: JP-GILEAD-2025-0721248

PATIENT
  Age: 76 Year
  Sex: Female

DRUGS (2)
  1. VEMLIDY [Suspect]
     Active Substance: TENOFOVIR ALAFENAMIDE FUMARATE
     Indication: Hepatitis B
     Route: 048
  2. ENTECAVIR [Concomitant]
     Active Substance: ENTECAVIR

REACTIONS (3)
  - Hepatitis B [Unknown]
  - Dementia [Unknown]
  - Treatment noncompliance [Unknown]
